FAERS Safety Report 6007508-6 (Version None)
Quarter: 2008Q4

REPORT INFORMATION
  Report Type: 
  Country: None (occurrence: None)
  Receive Date: 20081217
  Receipt Date: 20080619
  Transmission Date: 20090506
  Serious: No
  Sender: FDA-Public Use
  Company Number: US-ASTRAZENECA-2008UW08921

PATIENT
  Age: 73 Year
  Sex: Female
  Weight: 59.5 kg

DRUGS (7)
  1. CRESTOR [Suspect]
     Indication: HYPERCHOLESTEROLAEMIA
     Route: 048
     Dates: start: 20061001
  2. CRESTOR [Suspect]
     Indication: CORONARY ARTERY DISEASE
     Route: 048
     Dates: start: 20061001
  3. CRESTOR [Suspect]
     Indication: DYSLIPIDAEMIA
     Route: 048
     Dates: start: 20061001
  4. TOPAMAX [Concomitant]
  5. CLONAZEPAM [Concomitant]
  6. ZOLOFT [Concomitant]
  7. SYNTHROID [Concomitant]

REACTIONS (1)
  - FLATULENCE [None]
